FAERS Safety Report 15357723 (Version 1)
Quarter: 2018Q3

REPORT INFORMATION
  Report Type: Spontaneous
  Country: CL (occurrence: CL)
  Receive Date: 20180906
  Receipt Date: 20180906
  Transmission Date: 20181010
  Serious: Yes (Hospitalization, Other)
  Sender: FDA-Public Use
  Company Number: CL-SA-2018SA214958

PATIENT
  Age: 14 Month
  Sex: Male

DRUGS (3)
  1. CLOTRIMAZOLE. [Concomitant]
     Active Substance: CLOTRIMAZOLE
  2. BETAMETHASONE DIPROPIONATE. [Suspect]
     Active Substance: BETAMETHASONE DIPROPIONATE
     Indication: DERMATITIS
     Dosage: PROLONGED USE; .05% CREAM .
     Route: 061
  3. HYDROCORTISONE ACETATE. [Suspect]
     Active Substance: HYDROCORTISONE ACETATE
     Indication: DERMATITIS
     Dosage: 1% CREAM. TOPICAL THERAPY WAS SWITCHED TO ORAL THERAPY
     Route: 061

REACTIONS (7)
  - Growth retardation [Recovering/Resolving]
  - Cushingoid [Recovering/Resolving]
  - Obesity [Recovering/Resolving]
  - Hypertrichosis [Recovering/Resolving]
  - Dyslipidaemia [Recovering/Resolving]
  - Cushing^s syndrome [Recovering/Resolving]
  - Hypertension [Recovered/Resolved]
